FAERS Safety Report 11664737 (Version 2)
Quarter: 2015Q4

REPORT INFORMATION
  Report Type: Report from Study
  Country: US (occurrence: US)
  Receive Date: 20151027
  Receipt Date: 20151029
  Transmission Date: 20160304
  Serious: Yes (Hospitalization)
  Sender: FDA-Public Use
  Company Number: PHEH2015US020535

PATIENT
  Sex: Male

DRUGS (14)
  1. PULMOZYME [Concomitant]
     Active Substance: DORNASE ALFA
     Indication: PRODUCT USED FOR UNKNOWN INDICATION
     Dosage: 1 DF (2.5 MG/2.5 ML), UNK
     Route: 055
  2. ERGOCALCIFEROL. [Concomitant]
     Active Substance: ERGOCALCIFEROL
     Indication: PRODUCT USED FOR UNKNOWN INDICATION
     Dosage: 50000 IU, UNK
     Route: 048
  3. ALBUTEROL. [Concomitant]
     Active Substance: ALBUTEROL
     Indication: DYSPNOEA
     Dosage: 2.5 MG, Q4H (AS NEEDED)
     Route: 055
  4. TOBI PODHALER [Suspect]
     Active Substance: TOBRAMYCIN
     Indication: CYSTIC FIBROSIS
     Dosage: 112 MG, BID
     Route: 055
  5. TOBI PODHALER [Suspect]
     Active Substance: TOBRAMYCIN
     Indication: PSEUDOMONAS INFECTION
  6. BACTRIM [Concomitant]
     Active Substance: SULFAMETHOXAZOLE\TRIMETHOPRIM
     Indication: PRODUCT USED FOR UNKNOWN INDICATION
     Dosage: 1 DF (400/80), Q12H
     Route: 048
  7. ZENPEP [Concomitant]
     Active Substance: PANCRELIPASE\PANCRELIPASE AMYLASE\PANCRELIPASE LIPASE\PANCRELIPASE PROTEASE
     Indication: PRODUCT USED FOR UNKNOWN INDICATION
     Dosage: 5 DF, UNK (ORAL WITH MEALS)
     Route: 048
  8. TOBI [Concomitant]
     Active Substance: TOBRAMYCIN
     Indication: PRODUCT USED FOR UNKNOWN INDICATION
     Dosage: ALTERNATE EVERY OTHER MONTH WITH CAYSTON
     Route: 055
  9. CIPRO [Concomitant]
     Active Substance: CIPROFLOXACIN HYDROCHLORIDE
     Indication: PRODUCT USED FOR UNKNOWN INDICATION
     Dosage: UNK
     Route: 065
  10. ADEKS [Concomitant]
     Indication: PRODUCT USED FOR UNKNOWN INDICATION
     Dosage: 2 DF, QD
     Route: 048
  11. ZENPEP [Concomitant]
     Active Substance: PANCRELIPASE\PANCRELIPASE AMYLASE\PANCRELIPASE LIPASE\PANCRELIPASE PROTEASE
     Dosage: 4 DF, UNK (ORAL WITH SNACKS)
     Route: 048
  12. FLONASE [Concomitant]
     Active Substance: FLUTICASONE PROPIONATE
     Indication: PRODUCT USED FOR UNKNOWN INDICATION
     Dosage: 1 DF, QD
     Route: 045
  13. ZITHROMAX [Concomitant]
     Active Substance: AZITHROMYCIN DIHYDRATE
     Indication: PRODUCT USED FOR UNKNOWN INDICATION
     Dosage: 500 MG, UNK (MONDAY/WEDNESDAY/FRIDAY)
     Route: 048
  14. CAYSTON [Concomitant]
     Active Substance: AZTREONAM
     Indication: PRODUCT USED FOR UNKNOWN INDICATION
     Dosage: 75 MG, TID (ALTERNATE EVERY OTHER MONTH WITH TOBI AS DIRECTED BY PULMONOLOGY)
     Route: 055

REACTIONS (2)
  - Condition aggravated [Recovered/Resolved]
  - Cystic fibrosis [Recovered/Resolved]
